FAERS Safety Report 13434276 (Version 2)
Quarter: 2020Q3

REPORT INFORMATION
  Report Type: Report from Study
  Country: US (occurrence: US)
  Receive Date: 20170413
  Receipt Date: 20200805
  Transmission Date: 20201102
  Serious: Yes (Hospitalization, Disabling, Other)
  Sender: FDA-Public Use
  Company Number: US-SA-2017SA061536

PATIENT

DRUGS (1)
  1. ALEMTUZUMAB [Suspect]
     Active Substance: ALEMTUZUMAB
     Indication: MULTIPLE SCLEROSIS
     Dosage: 12 MG,QD
     Route: 041
     Dates: start: 20170320, end: 20170324

REACTIONS (5)
  - Thyroid disorder [Unknown]
  - Off label use [Unknown]
  - Immobile [Unknown]
  - Staphylococcal infection [Unknown]
  - Cystitis [Unknown]

NARRATIVE: CASE EVENT DATE: 20170326
